FAERS Safety Report 7272407-9 (Version None)
Quarter: 2011Q1

REPORT INFORMATION
  Report Type: 
  Country: None (occurrence: None)
  Receive Date: 20110203
  Receipt Date: 20110126
  Transmission Date: 20110831
  Serious: Yes (Other)
  Sender: FDA-Public Use
  Company Number: FR-BAYER-2011-008710

PATIENT
  Age: 37 Year
  Sex: Female

DRUGS (1)
  1. QLAIRA [Suspect]
     Indication: PRODUCT USED FOR UNKNOWN INDICATION
     Route: 048

REACTIONS (2)
  - PREGNANCY [None]
  - ABORTION [None]
